FAERS Safety Report 5585576-3 (Version None)
Quarter: 2008Q1

REPORT INFORMATION
  Report Type: 
  Country: None (occurrence: None)
  Receive Date: 20080109
  Receipt Date: 20080103
  Transmission Date: 20080703
  Serious: Yes (Other)
  Sender: FDA-Public Use
  Company Number: B0428483A

PATIENT
  Sex: Male

DRUGS (2)
  1. SEROXAT [Suspect]
     Dates: start: 20000308
  2. EFFEXOR [Concomitant]
     Dates: start: 20000101

REACTIONS (13)
  - AGITATION [None]
  - CONFUSIONAL STATE [None]
  - DEPRESSION [None]
  - DISTURBANCE IN ATTENTION [None]
  - DRUG WITHDRAWAL SYNDROME [None]
  - FATIGUE [None]
  - HYPERHIDROSIS [None]
  - INFLUENZA [None]
  - LETHARGY [None]
  - MEMORY IMPAIRMENT [None]
  - NIGHTMARE [None]
  - SLEEP DISORDER [None]
  - SUICIDAL IDEATION [None]
